FAERS Safety Report 13400425 (Version 2)
Quarter: 2017Q2

REPORT INFORMATION
  Report Type: Spontaneous
  Country: JP (occurrence: JP)
  Receive Date: 20170404
  Receipt Date: 20170419
  Transmission Date: 20170830
  Serious: Yes (Other)
  Sender: FDA-Public Use
  Company Number: JP-SA-2017SA055697

PATIENT
  Age: 68 Year
  Sex: Male

DRUGS (1)
  1. BCG FOR IMMUNOTHERAPY [Suspect]
     Active Substance: BACILLUS CALMETTE-GUERIN ANTIGEN, UNSPECIFIED SUBSTRAIN
     Indication: BLADDER CANCER
     Route: 043

REACTIONS (9)
  - Granuloma [Unknown]
  - Peripheral artery aneurysm [Unknown]
  - Tubulointerstitial nephritis [Unknown]
  - Renal impairment [Unknown]
  - Aortic aneurysm rupture [Unknown]
  - Abdominal pain [Unknown]
  - Aneurysm ruptured [Unknown]
  - Disseminated Bacillus Calmette-Guerin infection [Unknown]
  - Dysphagia [Unknown]
